FAERS Safety Report 10424076 (Version 2)
Quarter: 2015Q1

REPORT INFORMATION
  Report Type: Spontaneous
  Country: US (occurrence: US)
  Receive Date: 20140902
  Receipt Date: 20150220
  Transmission Date: 20150720
  Serious: Yes (Hospitalization, Other)
  Sender: FDA-Public Use
  Company Number: US-BAYER-2014-128418

PATIENT
  Age: 40 Year
  Sex: Female
  Weight: 48.53 kg

DRUGS (2)
  1. MIRENA [Suspect]
     Active Substance: LEVONORGESTREL
     Indication: CONTRACEPTION
     Dosage: 20 MCG/24HR, CONT
     Route: 015
     Dates: start: 20131218
  2. AVONEX [Concomitant]
     Active Substance: INTERFERON BETA-1A
     Indication: MULTIPLE SCLEROSIS
     Dosage: 1 DF, OW
     Route: 030
     Dates: start: 20140314, end: 20140618

REACTIONS (8)
  - Dehydration [Not Recovered/Not Resolved]
  - Gallbladder pain [None]
  - Ovarian cyst [None]
  - Cholelithiasis [None]
  - Nausea [None]
  - Malaise [None]
  - Nausea [Not Recovered/Not Resolved]
  - Diarrhoea [None]

NARRATIVE: CASE EVENT DATE: 20140616
